FAERS Safety Report 20819864 (Version 2)
Quarter: 2022Q3

REPORT INFORMATION
  Report Type: Spontaneous
  Country: DE (occurrence: DE)
  Receive Date: 20220512
  Receipt Date: 20220914
  Transmission Date: 20221027
  Serious: Yes (Hospitalization, Other)
  Sender: FDA-Public Use
  Company Number: DE-NOVARTISPH-NVSC2022DE103462

PATIENT
  Age: 66 Year
  Sex: Male

DRUGS (5)
  1. CARBOPLATIN [Suspect]
     Active Substance: CARBOPLATIN
     Indication: Non-small cell lung cancer
     Dosage: 394 MG
     Route: 042
     Dates: start: 20210601, end: 20210622
  2. OPDIVO [Suspect]
     Active Substance: NIVOLUMAB
     Indication: Non-small cell lung cancer
     Dosage: 360 MG (FREQ: DAY 1, REPEAT DAY 22)
     Route: 042
     Dates: start: 20210601, end: 20220201
  3. OPDIVO [Suspect]
     Active Substance: NIVOLUMAB
     Dosage: UNK (DOSE: UNAVAILABLE; FREQ: UNAVAILABLE)
     Route: 065
     Dates: end: 20220207
  4. YERVOY [Suspect]
     Active Substance: IPILIMUMAB
     Indication: Non-small cell lung cancer
     Dosage: 78 MG (FREQ: DAY1, REPEAT WEEK 6)
     Route: 042
     Dates: start: 20210601, end: 20220201
  5. YERVOY [Suspect]
     Active Substance: IPILIMUMAB
     Dosage: UNK
     Route: 065
     Dates: end: 20220207

REACTIONS (6)
  - Acute kidney injury [Recovered/Resolved]
  - Acute kidney injury [Recovered/Resolved]
  - Immune-mediated enterocolitis [Recovered/Resolved]
  - Renal impairment [Recovered/Resolved]
  - Vomiting [Unknown]
  - Diarrhoea [Unknown]

NARRATIVE: CASE EVENT DATE: 20220111
